FAERS Safety Report 16348281 (Version 5)
Quarter: 2019Q4

REPORT INFORMATION
  Report Type: Report from Study
  Country: US (occurrence: US)
  Receive Date: 20190523
  Receipt Date: 20191101
  Transmission Date: 20200122
  Serious: Yes (Other)
  Sender: FDA-Public Use
  Company Number: US-JNJFOC-20180728568

PATIENT
  Age: 66 Year
  Sex: Female

DRUGS (35)
  1. OXYCODONE HYDROCHLORIDE. [Concomitant]
     Active Substance: OXYCODONE HYDROCHLORIDE
  2. ABILIFY [Concomitant]
     Active Substance: ARIPIPRAZOLE
     Indication: ATTENTION DEFICIT/HYPERACTIVITY DISORDER
  3. LASIX [Concomitant]
     Active Substance: FUROSEMIDE
  4. IMBRUVICA [Suspect]
     Active Substance: IBRUTINIB
     Route: 048
  5. ABILIFY [Concomitant]
     Active Substance: ARIPIPRAZOLE
     Indication: DEPRESSION
  6. AMPHETAMINE [Concomitant]
     Active Substance: AMPHETAMINE
     Indication: DEPRESSION
  7. FLEXERIL [Concomitant]
     Active Substance: CYCLOBENZAPRINE HYDROCHLORIDE
     Indication: PAIN
  8. VENTOLIN [Concomitant]
     Active Substance: ALBUTEROL SULFATE
     Indication: ASTHMA
     Dosage: 90 MCG, UNK
  9. PRESERVISION [Concomitant]
     Active Substance: MINERALS\VITAMINS
  10. MELATONIN [Concomitant]
     Active Substance: MELATONIN
  11. EFFEXOR [Concomitant]
     Active Substance: VENLAFAXINE HYDROCHLORIDE
     Indication: DEPRESSION
  12. ATIVAN [Concomitant]
     Active Substance: LORAZEPAM
     Indication: ANXIETY
  13. IMBRUVICA [Suspect]
     Active Substance: IBRUTINIB
     Indication: CHRONIC LYMPHOCYTIC LEUKAEMIA
     Route: 048
     Dates: start: 20180501
  14. WELLBUTRIN [Concomitant]
     Active Substance: BUPROPION HYDROCHLORIDE
     Indication: DEPRESSION
  15. OXYCODONE AND ACETAMINOPHEN [Concomitant]
     Active Substance: ACETAMINOPHEN\OXYCODONE HYDROCHLORIDE
     Indication: PAIN
     Dosage: 10/325 MG
  16. FIORICET [Concomitant]
     Active Substance: ACETAMINOPHEN\BUTALBITAL\CAFFEINE
     Indication: PAIN
  17. FOLIC ACID. [Concomitant]
     Active Substance: FOLIC ACID
     Indication: SUPPLEMENTATION THERAPY
  18. IMMUNOGLOBULIN [Concomitant]
     Route: 042
  19. WELLBUTRIN [Concomitant]
     Active Substance: BUPROPION HYDROCHLORIDE
     Indication: ATTENTION DEFICIT/HYPERACTIVITY DISORDER
  20. AMPHETAMINE [Concomitant]
     Active Substance: AMPHETAMINE
     Indication: ATTENTION DEFICIT/HYPERACTIVITY DISORDER
  21. PYRIDIUM [Concomitant]
     Active Substance: PHENAZOPYRIDINE
  22. LIDOCAINE. [Concomitant]
     Active Substance: LIDOCAINE
     Indication: PAIN
     Dosage: 2 %, UNK GEL
  23. ASPIRIN 81 [Concomitant]
     Active Substance: ASPIRIN
     Indication: CARDIAC DISORDER
  24. EYE DROPS                          /00256502/ [Concomitant]
     Active Substance: OXYMETAZOLINE
  25. VALTREX [Concomitant]
     Active Substance: VALACYCLOVIR HYDROCHLORIDE
  26. TYLENOL [Concomitant]
     Active Substance: ACETAMINOPHEN
  27. NEURONTIN [Concomitant]
     Active Substance: GABAPENTIN
     Indication: PAIN
  28. SYNTHROID [Concomitant]
     Active Substance: LEVOTHYROXINE SODIUM
     Indication: HYPOTHYROIDISM
     Dosage: 100 MCG, UNK
  29. IRON [Concomitant]
     Active Substance: IRON
  30. CLARITIN [Concomitant]
     Active Substance: LORATADINE
  31. IMBRUVICA [Suspect]
     Active Substance: IBRUTINIB
     Route: 048
     Dates: start: 2017
  32. IMBRUVICA [Suspect]
     Active Substance: IBRUTINIB
     Route: 048
     Dates: start: 20180401
  33. IBUPROFEN. [Concomitant]
     Active Substance: IBUPROFEN
  34. VITAMINS                           /00067501/ [Concomitant]
     Active Substance: VITAMINS
  35. EFFEXOR [Concomitant]
     Active Substance: VENLAFAXINE HYDROCHLORIDE
     Indication: ATTENTION DEFICIT/HYPERACTIVITY DISORDER

REACTIONS (27)
  - Cyst [Not Recovered/Not Resolved]
  - Benign neoplasm of spinal cord [Recovering/Resolving]
  - Respiratory tract congestion [Recovered/Resolved]
  - Oral contusion [Not Recovered/Not Resolved]
  - Product dose omission [Unknown]
  - Bone loss [Unknown]
  - Contusion [Not Recovered/Not Resolved]
  - Urinary tract infection [Not Recovered/Not Resolved]
  - Cough [Recovered/Resolved]
  - Pain [Unknown]
  - Dysgeusia [Unknown]
  - Rash [Not Recovered/Not Resolved]
  - Spinal stenosis [Not Recovered/Not Resolved]
  - Muscle spasms [Recovered/Resolved]
  - Anaemia [Unknown]
  - Arthralgia [Not Recovered/Not Resolved]
  - Osteopenia [Unknown]
  - Bladder pain [Not Recovered/Not Resolved]
  - Immune system disorder [Unknown]
  - Pain in extremity [Not Recovered/Not Resolved]
  - Syncope [Recovered/Resolved]
  - Migraine [Not Recovered/Not Resolved]
  - Laboratory test abnormal [Unknown]
  - Pyrexia [Recovered/Resolved]
  - Immunosuppression [Unknown]
  - Visual impairment [Unknown]
  - Malaise [Recovered/Resolved]

NARRATIVE: CASE EVENT DATE: 2019
